FAERS Safety Report 5563807-3 (Version None)
Quarter: 2007Q4

REPORT INFORMATION
  Report Type: 
  Country: None (occurrence: None)
  Receive Date: 20071217
  Receipt Date: 20070827
  Transmission Date: 20080405
  Serious: No
  Sender: FDA-Public Use
  Company Number: US-ASTRAZENECA-2007UW20402

PATIENT
  Age: 70 Year
  Sex: Female
  Weight: 72.6 kg

DRUGS (3)
  1. CRESTOR [Suspect]
     Indication: BLOOD CHOLESTEROL INCREASED
     Route: 048
  2. ATACAND HCT [Concomitant]
     Route: 048
  3. NORVASC [Concomitant]

REACTIONS (4)
  - ABDOMINAL DISTENSION [None]
  - ANXIETY [None]
  - DIZZINESS [None]
  - OEDEMA PERIPHERAL [None]
